FAERS Safety Report 8279677-9 (Version None)
Quarter: 2012Q2

REPORT INFORMATION
  Report Type: 
  Country: None (occurrence: None)
  Receive Date: 20120412
  Receipt Date: 20110818
  Transmission Date: 20120825
  Serious: No
  Sender: FDA-Public Use
  Company Number: US-ASTRAZENECA-2011SE49838

PATIENT
  Age: 19669 Day
  Sex: Female

DRUGS (3)
  1. RIFABUTIN [Concomitant]
     Indication: HELICOBACTER INFECTION
  2. LEVAQUIN [Concomitant]
     Indication: HELICOBACTER INFECTION
  3. NEXIUM [Suspect]
     Indication: HELICOBACTER INFECTION
     Route: 048
     Dates: start: 20110810

REACTIONS (6)
  - RHINORRHOEA [None]
  - CONFUSIONAL STATE [None]
  - DRY MOUTH [None]
  - DIZZINESS [None]
  - PHOTOPHOBIA [None]
  - HEADACHE [None]
